FAERS Safety Report 22633727 (Version 1)
Quarter: 2023Q2

REPORT INFORMATION
  Report Type: Spontaneous
  Country: GR (occurrence: GR)
  Receive Date: 20230623
  Receipt Date: 20230623
  Transmission Date: 20230721
  Serious: Yes (Death)
  Sender: FDA-Public Use
  Company Number: GR-PFIZER INC-PV202300107002

PATIENT
  Age: 50 Year
  Sex: Female

DRUGS (6)
  1. MEROPENEM [Suspect]
     Active Substance: MEROPENEM
     Indication: Ecthyma
     Dosage: UNK
  2. LINEZOLID [Suspect]
     Active Substance: LINEZOLID
     Indication: Ecthyma
     Dosage: UNK
  3. VANCOMYCIN HYDROCHLORIDE [Suspect]
     Active Substance: VANCOMYCIN HYDROCHLORIDE
     Indication: Ecthyma
     Dosage: UNK
  4. CYTARABINE [Suspect]
     Active Substance: CYTARABINE
     Indication: Ecthyma
     Dosage: 100 MG/M2
  5. IDARUBICIN HYDROCHLORIDE [Suspect]
     Active Substance: IDARUBICIN HYDROCHLORIDE
     Indication: Ecthyma
     Dosage: 12 MG/M2
  6. ISAVUCONAZOLE [Suspect]
     Active Substance: ISAVUCONAZOLE
     Indication: Ecthyma

REACTIONS (3)
  - Death [Fatal]
  - Neoplasm progression [Unknown]
  - Off label use [Unknown]
